FAERS Safety Report 6913576-7 (Version None)
Quarter: 2010Q3

REPORT INFORMATION
  Report Type: 
  Country: None (occurrence: None)
  Receive Date: 20100719
  Receipt Date: 20090423
  Transmission Date: 20110219
  Serious: No
  Sender: FDA-Public Use
  Company Number: 2009-01078

PATIENT
  Sex: Female
  Weight: 92.9874 kg

DRUGS (2)
  1. ZICAM COLD REMEDY NASAL GEL [Suspect]
     Indication: NASOPHARYNGITIS
     Dosage: QD X 1 DOSE
  2. ZICAM COLD REMEDY NASAL GEL [Suspect]
     Indication: NASOPHARYNGITIS
     Dosage: QD X 1 DOSE

REACTIONS (3)
  - AGEUSIA [None]
  - ANOSMIA [None]
  - BURNING SENSATION [None]
